FAERS Safety Report 6407889-5 (Version None)
Quarter: 2009Q4

REPORT INFORMATION
  Report Type: 
  Country: None (occurrence: None)
  Receive Date: 20091015
  Receipt Date: 20090922
  Transmission Date: 20100525
  Serious: Yes (Other)
  Sender: FDA-Public Use
  Company Number: CF701262

PATIENT
  Sex: Female

DRUGS (1)
  1. BLINK GEL TEARS LUBRICATING EYE DROPS [Suspect]
     Indication: DRY EYE
     Dates: start: 20090920

REACTIONS (2)
  - EYE IRRITATION [None]
  - SENSATION OF FOREIGN BODY [None]
